FAERS Safety Report 8771530 (Version 1)
Quarter: 2012Q4

REPORT INFORMATION
  Report Type: 
  Country: JP (occurrence: JP)
  Receive Date: 20120905
  Receipt Date: 20120905
  Transmission Date: 20130627
  Serious: Yes (Hospitalization)
  Sender: FDA-Public Use
  Company Number: JP-PFIZER INC-2012213435

PATIENT
  Age: 38 Year
  Sex: Female

DRUGS (1)
  1. MEDROXYPROGESTERONE ACETATE [Suspect]
     Indication: ENDOMETRIAL CANCER
     Dosage: UNK
     Dates: start: 2001

REACTIONS (1)
  - Intracranial venous sinus thrombosis [Recovering/Resolving]
